FAERS Safety Report 4999346-8 (Version None)
Quarter: 2006Q2

REPORT INFORMATION
  Report Type: 
  Country: None (occurrence: None)
  Receive Date: 20060509
  Receipt Date: 20060509
  Transmission Date: 20061013
  Serious: Yes (Life-Threatening, Hospitalization)
  Sender: FDA-Public Use
  Company Number: None

PATIENT
  Age: 41 Year
  Sex: Female

DRUGS (7)
  1. ACETAMINOPHEN [Suspect]
     Indication: SUICIDE ATTEMPT
     Dosage: PO QD
     Route: 048
     Dates: start: 20051129
  2. ETHINYL ESTRADIOL AND NORETHINDRONE [Concomitant]
  3. LORAZEPAM [Concomitant]
  4. ONDANSETRON HCL [Concomitant]
  5. NEULASTA [Concomitant]
  6. LEVOFLOXZIN [Concomitant]
  7. CEFEPIME [Concomitant]

REACTIONS (5)
  - ALANINE AMINOTRANSFERASE INCREASED [None]
  - ASPARTATE AMINOTRANSFERASE INCREASED [None]
  - NAUSEA [None]
  - SUICIDE ATTEMPT [None]
  - VOMITING [None]
